FAERS Safety Report 5670682-5 (Version None)
Quarter: 2008Q1

REPORT INFORMATION
  Report Type: 
  Country: None (occurrence: None)
  Receive Date: 20080313
  Receipt Date: 20080306
  Transmission Date: 20080703
  Serious: Yes (Other)
  Sender: FDA-Public Use
  Company Number: 2008SP004745

PATIENT
  Age: 55 Year
  Sex: Female

DRUGS (2)
  1. PEG-INTRON [Suspect]
     Indication: HEPATITIS C
     Dosage: SC
     Route: 058
     Dates: start: 20071012
  2. RIBAVIRIN [Suspect]
     Indication: HEPATITIS C
     Dosage: PO
     Route: 048
     Dates: start: 20071012

REACTIONS (7)
  - DIZZINESS [None]
  - DYSGEUSIA [None]
  - DYSPHAGIA [None]
  - INFLUENZA LIKE ILLNESS [None]
  - SWOLLEN TONGUE [None]
  - TONGUE DISORDER [None]
  - TONGUE DRY [None]
